FAERS Safety Report 17211364 (Version 2)
Quarter: 2020Q1

REPORT INFORMATION
  Report Type: Spontaneous
  Country: US (occurrence: US)
  Receive Date: 20191228
  Receipt Date: 20200106
  Transmission Date: 20200409
  Serious: Yes (Hospitalization, Other)
  Sender: FDA-Public Use
  Company Number: US-JNJFOC-20191230098

PATIENT

DRUGS (2)
  1. PARACETAMOL [Suspect]
     Active Substance: ACETAMINOPHEN
     Indication: PRODUCT USED FOR UNKNOWN INDICATION
     Route: 065
  2. ALCOHOL. [Suspect]
     Active Substance: ALCOHOL
     Indication: PRODUCT USED FOR UNKNOWN INDICATION
     Route: 065

REACTIONS (14)
  - Liver injury [Unknown]
  - Acute kidney injury [Unknown]
  - Metabolic disorder [Unknown]
  - Intentional overdose [Unknown]
  - Intracranial pressure increased [Unknown]
  - Hepatitis [Unknown]
  - Encephalopathy [Unknown]
  - Delirium [Unknown]
  - Electrolyte imbalance [Unknown]
  - Alanine aminotransferase increased [Unknown]
  - Coagulopathy [Unknown]
  - Aspartate aminotransferase increased [Unknown]
  - Acute hepatic failure [Unknown]
  - Suicide attempt [Unknown]
